FAERS Safety Report 18664622 (Version 1)
Quarter: 2020Q4

REPORT INFORMATION
  Report Type: Spontaneous
  Country: DE (occurrence: DE)
  Receive Date: 20201225
  Receipt Date: 20201225
  Transmission Date: 20210114
  Serious: Yes (Other)
  Sender: FDA-Public Use
  Company Number: DE-BAUSCH-BL-2020-037670

PATIENT
  Age: 40 Year
  Sex: Male
  Weight: 70 kg

DRUGS (2)
  1. VENLAFAXINE [Suspect]
     Active Substance: VENLAFAXINE HYDROCHLORIDE
     Indication: DEPRESSION
     Dosage: INCREASED TO 300MG
     Route: 048
     Dates: start: 201901
  2. VENLAFAXINE [Suspect]
     Active Substance: VENLAFAXINE HYDROCHLORIDE
     Indication: SOMATIC SYMPTOM DISORDER

REACTIONS (5)
  - Erectile dysfunction [Recovering/Resolving]
  - Male orgasmic disorder [Recovering/Resolving]
  - Genital anaesthesia [Recovering/Resolving]
  - Penile discomfort [Recovering/Resolving]
  - Genital hypoaesthesia [Recovering/Resolving]

NARRATIVE: CASE EVENT DATE: 202003
